FAERS Safety Report 11684577 (Version 1)
Quarter: 2015Q4

REPORT INFORMATION
  Report Type: Spontaneous
  Country: GB (occurrence: GB)
  Receive Date: 20151029
  Receipt Date: 20151029
  Transmission Date: 20160304
  Serious: Yes (Other)
  Sender: FDA-Public Use
  Company Number: GB-TEVA-603322ACC

PATIENT
  Age: 68 Year
  Sex: Female
  Weight: 62 kg

DRUGS (14)
  1. ATORVASTATIN [Concomitant]
     Active Substance: ATORVASTATIN
     Dosage: 1 DOSAGE FORMS DAILY; AT NIGHT; DAILY DOSE: 1 DOSAGE FORM
     Dates: start: 20140806
  2. VENTOLIN [Concomitant]
     Active Substance: ALBUTEROL SULFATE
     Dosage: UP TO 4 TIMES A DAY AS NECESSARY
     Route: 055
     Dates: start: 20140806
  3. DULOXETINE. [Suspect]
     Active Substance: DULOXETINE
     Dates: start: 20150921
  4. LANTUS [Concomitant]
     Active Substance: INSULIN GLARGINE
     Dosage: USE AS DIRECTED
     Dates: start: 20140806
  5. TRAMADOL. [Concomitant]
     Active Substance: TRAMADOL
     Dosage: 2 DOSAGE FORMS DAILY;
     Dates: start: 20141117
  6. FLUOXETINE [Concomitant]
     Active Substance: FLUOXETINE HYDROCHLORIDE
     Dosage: 1 DOSAGE FORMS DAILY;
     Dates: start: 20151005
  7. HUMALOG [Concomitant]
     Active Substance: INSULIN LISPRO
     Dosage: USE AS DIRECTED
     Dates: start: 20140806
  8. FELODIPINE. [Concomitant]
     Active Substance: FELODIPINE
     Dosage: 1 DOSAGE FORMS DAILY;
     Dates: start: 20140806
  9. NYSTAN [Concomitant]
     Active Substance: NYSTATIN
     Dosage: 4 ML DAILY; TAKE AFTER FOOD; DAILY DOSE: 4 ML
     Dates: start: 20150814, end: 20150821
  10. RAMIPRIL. [Concomitant]
     Active Substance: RAMIPRIL
     Dosage: 1 DOSAGE FORMS DAILY;
     Dates: start: 20140806
  11. PAROXETINE [Concomitant]
     Active Substance: PAROXETINE\PAROXETINE HYDROCHLORIDE
     Dosage: 1 DOSAGE FORMS DAILY;
     Dates: start: 20150728, end: 20150921
  12. TIOTROPIUM [Concomitant]
     Active Substance: TIOTROPIUM
     Dosage: 1 DOSAGE FORMS DAILY;
     Route: 055
     Dates: start: 20140806
  13. CLOPIDOGREL [Concomitant]
     Active Substance: CLOPIDOGREL BISULFATE
     Dosage: 1 DOSAGE FORMS DAILY;
     Dates: start: 20140806
  14. PARACETAMOL [Concomitant]
     Active Substance: ACETAMINOPHEN
     Dosage: TAKE 1 OR 2 FOUR TIMES DAILY
     Dates: start: 20140806

REACTIONS (3)
  - Diarrhoea [Recovered/Resolved]
  - Nightmare [Unknown]
  - Balance disorder [Unknown]

NARRATIVE: CASE EVENT DATE: 20151007
